FAERS Safety Report 6473130-0 (Version None)
Quarter: 2009Q4

REPORT INFORMATION
  Report Type: 
  Country: None (occurrence: None)
  Receive Date: 20091204
  Receipt Date: 20080501
  Transmission Date: 20100525
  Serious: Yes (Death)
  Sender: FDA-Public Use
  Company Number: KR-ELI_LILLY_AND_COMPANY-KR200805000244

PATIENT
  Age: 72 Year
  Sex: Male

DRUGS (7)
  1. GEMCITABINE HCL [Suspect]
     Indication: NON-SMALL CELL LUNG CANCER STAGE IV
     Dosage: 1250 MG/M2 (10MG/M2 MIN) FIXED DOSE RATE ON DAYS 1 AND 8
     Route: 042
  2. CISPLATIN [Concomitant]
     Indication: NON-SMALL CELL LUNG CANCER STAGE IV
     Dosage: 75 MG/M2, ON DAY 1
     Route: 042
  3. UFT [Concomitant]
     Indication: NON-SMALL CELL LUNG CANCER STAGE IV
     Dosage: 200MG TWICE DAILY ON DAYS 1 TO 14
     Route: 048
  4. NORMAL SALINE [Concomitant]
     Dosage: 1000 ML, EACH DAY OF CISPLATIN ADMINISTRATION
     Route: 042
  5. POTASSIUM CHLORIDE [Concomitant]
     Dosage: 40 MEQ, EACH DAY OF CISPLATIN ADMINISTRATION
     Route: 042
  6. MAGNESIUM SULFATE [Concomitant]
     Dosage: 1 G, EACH DAY OF CISPLATIN ADMINISTRATION
     Route: 065
  7. FUROSEMIDE [Concomitant]
     Dosage: 20 MG EACH DAY OF CISPLATIN ADMINISTRATION
     Route: 042

REACTIONS (2)
  - INAPPROPRIATE ANTIDIURETIC HORMONE SECRETION [None]
  - NEUTROPENIA [None]
